FAERS Safety Report 10960351 (Version 1)
Quarter: 2015Q1

REPORT INFORMATION
  Report Type: Spontaneous
  Country: CN (occurrence: CN)
  Receive Date: 20150327
  Receipt Date: 20150327
  Transmission Date: 20150721
  Serious: Yes (Other)
  Sender: FDA-Public Use
  Company Number: CN-JNJFOC-20140506886

PATIENT
  Sex: Female
  Weight: 5 kg

DRUGS (3)
  1. TOPAMAX [Suspect]
     Active Substance: TOPIRAMATE
     Indication: EPILEPSY
     Dosage: 2/3 TABLET PER TIME TWICE PER DAY
     Route: 048
     Dates: start: 20140424
  2. TOPAMAX [Suspect]
     Active Substance: TOPIRAMATE
     Indication: EPILEPSY
     Dosage: 1/3 TABLET (0.33 DOSAGE FORM) TWICE A DAY
     Route: 048
     Dates: start: 20140517
  3. TOPAMAX [Suspect]
     Active Substance: TOPIRAMATE
     Indication: EPILEPSY
     Dosage: HALF TABLET PER TIME
     Route: 048
     Dates: start: 20140409, end: 20140424

REACTIONS (5)
  - Epilepsy [Recovering/Resolving]
  - Cerebral disorder [Recovered/Resolved]
  - Pyrexia [Recovered/Resolved]
  - Product use issue [Unknown]
  - Wrong technique in drug usage process [Unknown]

NARRATIVE: CASE EVENT DATE: 20140409
